FAERS Safety Report 25274132 (Version 2)
Quarter: 2025Q2

REPORT INFORMATION
  Report Type: Spontaneous
  Country: US (occurrence: US)
  Receive Date: 20250506
  Receipt Date: 20250507
  Transmission Date: 20250717
  Serious: No
  Sender: BAYER HEALTHCARE PHARMACEUTICALS INC.
  Company Number: US-BAYER-2025A060836

PATIENT
  Age: 61 Year
  Sex: Female

DRUGS (1)
  1. BETASERON [Suspect]
     Active Substance: INTERFERON BETA-1B

REACTIONS (1)
  - Foot fracture [None]

NARRATIVE: CASE EVENT DATE: 20250430
